FAERS Safety Report 6199246-4 (Version None)
Quarter: 2009Q2

REPORT INFORMATION
  Report Type: 
  Country: None (occurrence: None)
  Receive Date: 20090522
  Receipt Date: 20090512
  Transmission Date: 20091009
  Serious: Yes (Hospitalization)
  Sender: FDA-Public Use
  Company Number: TR-ELI_LILLY_AND_COMPANY-TR200905004157

PATIENT
  Age: 68 Year

DRUGS (2)
  1. HUMULIN 70/30 [Suspect]
     Indication: DIABETES MELLITUS
     Dosage: 40 U, EACH MORNING
     Route: 058
     Dates: start: 19960101
  2. HUMULIN 70/30 [Suspect]
     Dosage: 20 U, EACH EVENING
     Route: 058
     Dates: start: 19960101

REACTIONS (1)
  - BLOOD GLUCOSE INCREASED [None]
